FAERS Safety Report 8615928-6 (Version None)
Quarter: 2012Q3

REPORT INFORMATION
  Report Type: 
  Country: None (occurrence: None)
  Receive Date: 20120823
  Receipt Date: 20110602
  Transmission Date: 20120928
  Serious: Yes (Other)
  Sender: FDA-Public Use
  Company Number: ZA-GLAXOSMITHKLINE-B0724868A

PATIENT
  Sex: Male

DRUGS (2)
  1. UNKNOWN INJECTION [Concomitant]
  2. SUMATRIPTAN SUCCINATE [Suspect]
     Indication: MIGRAINE
     Dates: start: 20110531

REACTIONS (3)
  - ILL-DEFINED DISORDER [None]
  - DRUG INEFFECTIVE [None]
  - CLUSTER HEADACHE [None]
